FAERS Safety Report 16028800 (Version 1)
Quarter: 2019Q2

REPORT INFORMATION
  Report Type: Spontaneous
  Country: US (occurrence: US)
  Receive Date: 20190301
  Receipt Date: 20190301
  Transmission Date: 20190711
  Serious: Yes (Other)
  Sender: FDA-Public Use
  Company Number: None

PATIENT
  Age: 61 Year
  Sex: Female
  Weight: 92.7 kg

DRUGS (2)
  1. LOSARTAN POTASSIUM. [Suspect]
     Active Substance: LOSARTAN POTASSIUM
     Indication: HYPERTENSION
     Dosage: ?          QUANTITY:1 TABLET(S);?
     Route: 048
     Dates: start: 20190228, end: 20190301
  2. LOSARTAN POTASSIUM TABLETS USP 25 MG 90 TABLETS [Suspect]
     Active Substance: LOSARTAN POTASSIUM
     Indication: HYPERTENSION
     Dosage: ?          QUANTITY:1 TABLET(S);?
     Route: 048
     Dates: start: 20181209, end: 20190227

REACTIONS (6)
  - Nausea [None]
  - Diarrhoea [None]
  - Stress [None]
  - Abdominal distension [None]
  - Recalled product administered [None]
  - Pain [None]

NARRATIVE: CASE EVENT DATE: 20190228
